FAERS Safety Report 11878480 (Version 1)
Quarter: 2015Q4

REPORT INFORMATION
  Report Type: Spontaneous
  Country: US (occurrence: None)
  Receive Date: 20151229
  Receipt Date: 20151229
  Transmission Date: 20160305
  Serious: No
  Sender: FDA-Public Use
  Company Number: None

PATIENT
  Age: 57 Year
  Sex: Male
  Weight: 100.7 kg

DRUGS (11)
  1. GENTAMICIAN 80MG FB:RAS -CRC- [Suspect]
     Active Substance: GENTAMICIN
     Indication: SINUSITIS
     Dosage: SINUS RINSE
     Dates: start: 20151021, end: 20151228
  2. DIOVAN [Concomitant]
     Active Substance: VALSARTAN
  3. TAMSULOSIN [Concomitant]
     Active Substance: TAMSULOSIN
  4. CYMBALTA [Concomitant]
     Active Substance: DULOXETINE HYDROCHLORIDE
  5. ZOLPIDERM TARTRATE 5MG [Concomitant]
     Active Substance: ZOLPIDEM TARTRATE
  6. NORTRIPTYLINE [Concomitant]
     Active Substance: NORTRIPTYLINE
  7. GENTAMICIAN 80MG FB:RAS -CRC- [Suspect]
     Active Substance: GENTAMICIN
     Indication: PROPHYLAXIS
     Dosage: SINUS RINSE
     Dates: start: 20151021, end: 20151228
  8. CELEBREX [Concomitant]
     Active Substance: CELECOXIB
  9. HYDROCHLOROTHIAZIDE. [Concomitant]
     Active Substance: HYDROCHLOROTHIAZIDE
  10. ABILIFY [Concomitant]
     Active Substance: ARIPIPRAZOLE
  11. ATORVASTATIN [Concomitant]
     Active Substance: ATORVASTATIN

REACTIONS (3)
  - Product solubility abnormal [None]
  - Product colour issue [None]
  - Product physical consistency issue [None]

NARRATIVE: CASE EVENT DATE: 20151228
